FAERS Safety Report 25934719 (Version 1)
Quarter: 2025Q4

REPORT INFORMATION
  Report Type: Spontaneous
  Country: EU (occurrence: EU)
  Receive Date: 20251017
  Receipt Date: 20251017
  Transmission Date: 20260118
  Serious: Yes (Hospitalization, Other)
  Sender: TEVA
  Company Number: None

PATIENT
  Age: 66 Year
  Sex: Female

DRUGS (2)
  1. MELPHALAN [Suspect]
     Active Substance: MELPHALAN
     Indication: Plasma cell myeloma
     Dosage: 200 MG/M2 (TOTAL INFUSED DOSE 316 MG), MELPHALAN TEVA
     Route: 042
     Dates: start: 20250926, end: 20250926
  2. TRAMADOL HYDROCHLORIDE [Suspect]
     Active Substance: TRAMADOL HYDROCHLORIDE
     Indication: Plasma cell myeloma
     Dosage: 15 DROPS X 3/DAY (THERAPY ALREADY UNDERWAY AT HOME FOR CHRONIC PAIN)
     Route: 048
     Dates: start: 19700101

REACTIONS (1)
  - Epilepsy [Recovered/Resolved]

NARRATIVE: CASE EVENT DATE: 20250927
